FAERS Safety Report 25983976 (Version 1)
Quarter: 2025Q4

REPORT INFORMATION
  Report Type: Other
  Country: CA (occurrence: CA)
  Receive Date: 20251031
  Receipt Date: 20251031
  Transmission Date: 20260117
  Serious: Yes (Other)
  Sender: APOTEX
  Company Number: CA-PGRTD-001155684

PATIENT
  Age: 35 Year
  Sex: Male

DRUGS (1)
  1. OXCARBAZEPINE [Suspect]
     Active Substance: OXCARBAZEPINE
     Indication: Epilepsy
     Dosage: 2 EVERY 1 DAYS
     Route: 048

REACTIONS (2)
  - Seizure [Recovered/Resolved]
  - Product substitution issue [Recovered/Resolved]
